FAERS Safety Report 9688660 (Version 1)
Quarter: 2013Q4

REPORT INFORMATION
  Report Type: Spontaneous
  Country: GB (occurrence: GB)
  Receive Date: 20131114
  Receipt Date: 20131114
  Transmission Date: 20140711
  Serious: Yes (Other)
  Sender: FDA-Public Use
  Company Number: PHHY2013GB126613

PATIENT
  Age: 40 Year
  Sex: Female
  Weight: 60 kg

DRUGS (2)
  1. CLONIDINE [Suspect]
     Indication: HAEMORRHAGE
     Dosage: 50 UG, UNK
     Route: 048
     Dates: start: 20131024
  2. CO-DYDRAMOL [Concomitant]
     Indication: PAIN
     Dosage: 1 G, UNK
     Route: 048
     Dates: start: 20131024

REACTIONS (2)
  - Hypotension [Recovered/Resolved]
  - Hypersensitivity [Recovered/Resolved]
